FAERS Safety Report 18747859 (Version 5)
Quarter: 2021Q3

REPORT INFORMATION
  Report Type: Report from Study
  Country: DE (occurrence: DE)
  Receive Date: 20210115
  Receipt Date: 20210817
  Transmission Date: 20211014
  Serious: Yes (Death, Life-Threatening, Hospitalization, Other)
  Sender: FDA-Public Use
  Company Number: DE-BRISTOL-MYERS SQUIBB COMPANY-BMS-2020-089339

PATIENT
  Age: 63 Year
  Sex: Male

DRUGS (5)
  1. METAMIZOL NATRIUM [Concomitant]
     Active Substance: METAMIZOLE SODIUM
     Indication: PRODUCT USED FOR UNKNOWN INDICATION
     Route: 065
  2. MICONAZOL [MICONAZOLE NITRATE] [Concomitant]
     Indication: PRODUCT USED FOR UNKNOWN INDICATION
     Route: 065
  3. NIVOLUMAB [Suspect]
     Active Substance: NIVOLUMAB
     Indication: MALIGNANT MELANOMA
     Dosage: 480 MILLIGRAM, Q4WK
     Route: 042
     Dates: start: 20191030, end: 20201109
  4. ONDANSETRON HYDROCHLORIDE. [Concomitant]
     Active Substance: ONDANSETRON HYDROCHLORIDE
     Indication: PRODUCT USED FOR UNKNOWN INDICATION
  5. ETORICOXIB. [Concomitant]
     Active Substance: ETORICOXIB
     Indication: PRODUCT USED FOR UNKNOWN INDICATION
     Dosage: UNK
     Route: 065

REACTIONS (14)
  - Spinal stenosis [Unknown]
  - Decreased appetite [Unknown]
  - Weight decreased [Recovering/Resolving]
  - Abdominal pain lower [Unknown]
  - Nausea [Recovering/Resolving]
  - Hyperthyroidism [Recovering/Resolving]
  - COVID-19 [Unknown]
  - Back pain [Recovering/Resolving]
  - Malignant neoplasm progression [Fatal]
  - Pneumonia [Unknown]
  - Nosocomial infection [Unknown]
  - Chest pain [Unknown]
  - Skin exfoliation [Recovered/Resolved]
  - Dry mouth [Unknown]

NARRATIVE: CASE EVENT DATE: 202006
